FAERS Safety Report 12220386 (Version 1)
Quarter: 2016Q1

REPORT INFORMATION
  Report Type: Spontaneous
  Country: US (occurrence: None)
  Receive Date: 20160329
  Receipt Date: 20160329
  Transmission Date: 20160526
  Serious: No
  Sender: FDA-Public Use
  Company Number: None

PATIENT
  Age: 83 Year
  Sex: Female

DRUGS (1)
  1. TETRABENAZINE 12.5MG SUN PHARMACEUTICALS [Suspect]
     Active Substance: TETRABENAZINE
     Indication: HUNTINGTON^S DISEASE
     Route: 048
     Dates: start: 20160227, end: 20160324

REACTIONS (3)
  - Condition aggravated [None]
  - Product substitution issue [None]
  - Dyskinesia [None]

NARRATIVE: CASE EVENT DATE: 20160305
